FAERS Safety Report 24668548 (Version 1)
Quarter: 2024Q4

REPORT INFORMATION
  Report Type: Spontaneous
  Country: CN (occurrence: CN)
  Receive Date: 20241127
  Receipt Date: 20241127
  Transmission Date: 20250115
  Serious: Yes (Other)
  Sender: GILEAD
  Company Number: CN-GILEAD-2024-0695096

PATIENT

DRUGS (1)
  1. BIKTARVY [Suspect]
     Active Substance: BICTEGRAVIR SODIUM\EMTRICITABINE\TENOFOVIR ALAFENAMIDE FUMARATE
     Indication: Prophylaxis against HIV infection
     Route: 065

REACTIONS (8)
  - Psychotic disorder [Unknown]
  - Somnolence [Unknown]
  - Pharyngeal swelling [Unknown]
  - Asthenia [Unknown]
  - Muscular weakness [Unknown]
  - Arthralgia [Unknown]
  - Fear [Unknown]
  - Product use in unapproved indication [Unknown]
